FAERS Safety Report 21892397 (Version 1)
Quarter: 2023Q1

REPORT INFORMATION
  Report Type: Spontaneous
  Country: CN (occurrence: None)
  Receive Date: 20230120
  Receipt Date: 20230120
  Transmission Date: 20230417
  Serious: Yes (Other)
  Sender: FDA-Public Use
  Company Number: 2023A013724

PATIENT
  Age: 58 Year
  Sex: Male

DRUGS (4)
  1. OSIMERTINIB [Suspect]
     Active Substance: OSIMERTINIB
     Indication: Small cell lung cancer
     Route: 048
  2. BEVACIZUMAB [Concomitant]
     Active Substance: BEVACIZUMAB
     Dosage: 7.5MG/KG INTRAVENOUSLY INJECTED ON DAY 1, ONCE EVERY 3 WEEKS
     Route: 042
  3. PACLITAXEL [Concomitant]
     Active Substance: PACLITAXEL
     Dosage: 135MG/M2 INTRAVENOUSLY INJECTED AT DAY 1
     Route: 042
  4. ETOPOSIDE [Concomitant]
     Active Substance: ETOPOSIDE
     Dosage: 100MG/M2 INTRAVENOUSLY INJECTED ON DAY 1-3
     Route: 042

REACTIONS (5)
  - Drug resistance [Unknown]
  - Malignant neoplasm progression [Unknown]
  - Malignant transformation [Unknown]
  - Metastases to gastrointestinal tract [Unknown]
  - EGFR gene mutation [Unknown]

NARRATIVE: CASE EVENT DATE: 20200401
